FAERS Safety Report 9896737 (Version 2)
Quarter: 2014Q1

REPORT INFORMATION
  Report Type: Spontaneous
  Country: US (occurrence: US)
  Receive Date: 20140213
  Receipt Date: 20140213
  Transmission Date: 20141002
  Serious: Yes (Other)
  Sender: FDA-Public Use
  Company Number: US-BRISTOL-MYERS SQUIBB COMPANY-19174945

PATIENT
  Age: 63 Year
  Sex: Male
  Weight: 112.04 kg

DRUGS (1)
  1. ORENCIA [Suspect]
     Indication: POLYARTHRITIS
     Route: 042
     Dates: start: 20130805

REACTIONS (2)
  - Hypersensitivity [Recovered/Resolved]
  - Abdominal pain upper [Recovered/Resolved]
